FAERS Safety Report 13594335 (Version 4)
Quarter: 2018Q4

REPORT INFORMATION
  Report Type: Report from Study
  Country: CN (occurrence: CN)
  Receive Date: 20170530
  Receipt Date: 20181231
  Transmission Date: 20190204
  Serious: Yes (Hospitalization, Other)
  Sender: FDA-Public Use
  Company Number: PHHY2017CN065663

PATIENT
  Age: 39 Year
  Sex: Male
  Weight: 59.3 kg

DRUGS (58)
  1. MYFORTIC [Suspect]
     Active Substance: MYCOPHENOLATE SODIUM
     Indication: RENAL TRANSPLANT
     Dosage: 1440 MG, QD
     Route: 065
     Dates: start: 20170408, end: 20170408
  2. SIMULECT [Suspect]
     Active Substance: BASILIXIMAB
     Indication: PROPHYLAXIS AGAINST TRANSPLANT REJECTION
     Dosage: 20 MG, QD
     Route: 042
     Dates: start: 20170412, end: 20170412
  3. METHYLPREDNISOLONE. [Suspect]
     Active Substance: METHYLPREDNISOLONE
     Dosage: 40 MG, QD
     Route: 065
     Dates: start: 20170412, end: 20170415
  4. SODIUM CHLORIDE. [Concomitant]
     Active Substance: SODIUM CHLORIDE
     Indication: PRODUCT USED FOR UNKNOWN INDICATION
     Dosage: 500 ML, QD
     Route: 042
     Dates: start: 20170410, end: 20170410
  5. ESOMEPRAZOLE. [Concomitant]
     Active Substance: ESOMEPRAZOLE MAGNESIUM
     Indication: GASTRITIS PROPHYLAXIS
     Dosage: 40 MG, QD
     Route: 042
     Dates: start: 20170409, end: 20170424
  6. INSULIN [Concomitant]
     Active Substance: INSULIN NOS
     Indication: BLOOD GLUCOSE ABNORMAL
     Dosage: 6 IU, PRN
     Route: 058
     Dates: start: 20170415, end: 20170415
  7. SODIUM BICARBONATE. [Concomitant]
     Active Substance: SODIUM BICARBONATE
     Indication: PRODUCT USED FOR UNKNOWN INDICATION
     Dosage: 1000 MG, BID
     Route: 048
     Dates: start: 20170416
  8. TIGECYCLINE. [Concomitant]
     Active Substance: TIGECYCLINE
     Dosage: 100 MG, QD
     Route: 042
     Dates: start: 20170502
  9. SIMULECT [Suspect]
     Active Substance: BASILIXIMAB
     Indication: RENAL TRANSPLANT
     Dosage: 20 MG, QD
     Route: 065
     Dates: start: 20170408, end: 20170408
  10. TACROLIMUS. [Suspect]
     Active Substance: TACROLIMUS
     Dosage: 7 MG, QD
     Route: 065
     Dates: start: 20170411, end: 20170421
  11. METHYLPREDNISOLONE. [Suspect]
     Active Substance: METHYLPREDNISOLONE
     Dosage: 320 MG, QD
     Route: 065
     Dates: start: 20170411, end: 20170411
  12. BICYCLOL [Concomitant]
     Active Substance: BICYCLOL
     Indication: PROPHYLAXIS
     Dosage: 25 MG, TID
     Route: 048
     Dates: start: 20170415, end: 20170424
  13. CASPOFUNGIN ACETATE. [Concomitant]
     Active Substance: CASPOFUNGIN ACETATE
     Indication: INFECTION
     Dosage: 50 MG, QD
     Route: 042
     Dates: start: 20170408, end: 20170415
  14. CEFOPERAZONE SODIUM AND SULBACTAM SODIUM [Concomitant]
     Active Substance: CEFOPERAZONE SODIUM\SULBACTAM SODIUM
     Indication: INFECTION
     Dosage: 2000 MG, PRN
     Route: 042
     Dates: start: 20170408, end: 20170408
  15. DIAZEPAM. [Concomitant]
     Active Substance: DIAZEPAM
     Indication: SEDATION
     Dosage: 5 MG, PRN
     Route: 048
     Dates: start: 20170408, end: 20170408
  16. DILTIAZEM HYDROCHLORIDE. [Concomitant]
     Active Substance: DILTIAZEM HYDROCHLORIDE
     Indication: PRODUCT USED FOR UNKNOWN INDICATION
     Dosage: 30 MG, BID
     Route: 048
     Dates: start: 20170409
  17. GANCICLOVIR. [Concomitant]
     Active Substance: GANCICLOVIR
     Indication: ANTIVIRAL TREATMENT
     Dosage: 450 MG, QD
     Route: 042
     Dates: start: 20170412, end: 20170424
  18. FIBRINOGEN HUMAN [Concomitant]
     Active Substance: FIBRINOGEN HUMAN
     Indication: SUPPLEMENTATION THERAPY
     Dosage: 1000 MG, QD
     Route: 042
     Dates: start: 20170410, end: 20170424
  19. MAGNESIUM SULFATE. [Concomitant]
     Active Substance: MAGNESIUM SULFATE
     Indication: PRODUCT USED FOR UNKNOWN INDICATION
     Dosage: 3.2 ML, QD
     Route: 042
     Dates: start: 20170408, end: 20170409
  20. MANNITOL. [Concomitant]
     Active Substance: MANNITOL
     Indication: PROPHYLAXIS
     Dosage: 125 ML, PRN
     Route: 042
     Dates: start: 20170408, end: 20170408
  21. POTASSIUM CHLORIDE. [Concomitant]
     Active Substance: POTASSIUM CHLORIDE
     Indication: PROPHYLAXIS
     Dosage: 20 ML, PRN
     Route: 048
     Dates: start: 20170413, end: 20170413
  22. TIGECYCLINE. [Concomitant]
     Active Substance: TIGECYCLINE
     Indication: INFECTION
     Dosage: 50 MG, QD
     Route: 042
     Dates: start: 20170408, end: 20170421
  23. FUROSEMIDE. [Concomitant]
     Active Substance: FUROSEMIDE
     Indication: POLYURIA
     Dosage: 80 MG, PRN
     Route: 042
     Dates: start: 20170408, end: 20170408
  24. HEPATITIS B IMMUNE GLOBULIN [Concomitant]
     Active Substance: HUMAN HEPATITIS B VIRUS IMMUNE GLOBULIN
     Indication: INFECTION PROPHYLAXIS
     Dosage: 400 IU, PRN
     Route: 030
     Dates: start: 20170409, end: 20170409
  25. TIENAM [Concomitant]
     Active Substance: CILASTATIN SODIUM\IMIPENEM
     Indication: INFECTION
     Dosage: 0.5 G, QD
     Route: 042
  26. FUROSEMIDE. [Concomitant]
     Active Substance: FUROSEMIDE
     Indication: POLYURIA
     Dosage: 20 MG, BID
     Route: 048
  27. DEXAMETHASONE. [Concomitant]
     Active Substance: DEXAMETHASONE
     Indication: PROPHYLAXIS
     Dosage: 10 MG, PRN
     Route: 042
     Dates: start: 20170408, end: 20170408
  28. POVIDONE IODIDE [Concomitant]
     Active Substance: POVIDONE-IODINE
     Indication: INFECTION
     Dosage: 10 ML, QD
     Route: 061
     Dates: start: 20170419, end: 20170424
  29. VIT K1 [Concomitant]
     Active Substance: PHYTONADIONE
     Indication: HAEMORRHAGE PROPHYLAXIS
     Dosage: 30 MG, QD
     Route: 042
     Dates: start: 20170411, end: 20170421
  30. MYFORTIC [Suspect]
     Active Substance: MYCOPHENOLATE SODIUM
     Indication: IMMUNOSUPPRESSANT DRUG THERAPY
     Dosage: 540 MG, BID
     Route: 048
     Dates: start: 20170424
  31. TACROLIMUS. [Suspect]
     Active Substance: TACROLIMUS
     Dosage: 6 MG, QD
     Route: 065
     Dates: start: 20170422, end: 20170423
  32. METHYLPREDNISOLONE. [Suspect]
     Active Substance: METHYLPREDNISOLONE
     Dosage: 20 MG, QD
     Route: 065
     Dates: start: 20170416, end: 20170423
  33. AMLODIPIN/ATORVASTATIN [Concomitant]
     Active Substance: AMLODIPINE BESYLATE\ATORVASTATIN CALCIUM
     Indication: BLOOD PRESSURE DECREASED
     Dosage: 1 DF, BID
     Route: 048
     Dates: start: 20170705
  34. FUROSEMIDE. [Concomitant]
     Active Substance: FUROSEMIDE
     Indication: PROPHYLAXIS
     Dosage: 40 MG, QD
     Route: 042
     Dates: start: 20170411, end: 20170415
  35. PROMETHAZINE [Concomitant]
     Active Substance: PROMETHAZINE\PROMETHAZINE HYDROCHLORIDE
     Indication: SEDATION
     Dosage: 2 DF, TID
     Route: 048
     Dates: start: 20170409, end: 20170410
  36. ALBUMIN (HUMAN) [Concomitant]
     Active Substance: ALBUMIN HUMAN
     Indication: SUPPLEMENTATION THERAPY
     Dosage: 10000 MG, PRN
     Route: 042
     Dates: start: 20170410, end: 20170410
  37. TIGECYCLINE. [Concomitant]
     Active Substance: TIGECYCLINE
     Dosage: 50 MG, QD
     Route: 041
     Dates: start: 20170505
  38. METHYLPREDNISOLONE. [Suspect]
     Active Substance: METHYLPREDNISOLONE
     Indication: PROPHYLAXIS
     Dosage: 700 MG, QD
     Route: 065
     Dates: start: 20170408, end: 20170408
  39. ALPROSTADIL. [Concomitant]
     Active Substance: ALPROSTADIL
     Indication: PRODUCT USED FOR UNKNOWN INDICATION
     Dosage: 20 UG, QD (LIPID MICROSPHERES FOR INJECTION )
     Route: 042
     Dates: start: 20170409, end: 20170424
  40. AMIKACIN. [Concomitant]
     Active Substance: AMIKACIN
     Indication: INFECTION
     Dosage: 400 MG, PRN
     Route: 061
     Dates: start: 20170408, end: 20170408
  41. CALCIUM GLUCONATE. [Concomitant]
     Active Substance: CALCIUM GLUCONATE
     Indication: PROPHYLAXIS
     Dosage: 3000 MG, QD
     Route: 042
     Dates: start: 20170409, end: 20170410
  42. MYFORTIC [Suspect]
     Active Substance: MYCOPHENOLATE SODIUM
     Indication: PROPHYLAXIS AGAINST TRANSPLANT REJECTION
     Dosage: 1440 MG, QD
     Route: 065
     Dates: start: 20170409, end: 20170423
  43. TACROLIMUS. [Suspect]
     Active Substance: TACROLIMUS
     Indication: IMMUNOSUPPRESSANT DRUG THERAPY
     Dosage: 6 MG, QD
     Route: 065
     Dates: start: 20170409, end: 20170410
  44. PREDNISONE. [Suspect]
     Active Substance: PREDNISONE
     Indication: IMMUNOSUPPRESSANT DRUG THERAPY
     Dosage: 10 MG, QD
     Route: 065
     Dates: start: 20170423
  45. METHYLPREDNISOLONE. [Suspect]
     Active Substance: METHYLPREDNISOLONE
     Dosage: 620 MG, QD
     Route: 065
     Dates: start: 20170409, end: 20170410
  46. ALPRAZOLAM. [Concomitant]
     Active Substance: ALPRAZOLAM
     Indication: SEDATION
     Dosage: 0.4 MG, QD
     Route: 048
     Dates: start: 20170409, end: 20170424
  47. AMIKACIN. [Concomitant]
     Active Substance: AMIKACIN
     Indication: PROPHYLAXIS
     Dosage: 400 MG, QD
     Route: 042
     Dates: start: 20170410, end: 20170416
  48. CEFOPERAZONE SODIUM AND SULBACTAM SODIUM [Concomitant]
     Active Substance: CEFOPERAZONE SODIUM\SULBACTAM SODIUM
     Dosage: 2000 MG, QD
     Route: 042
     Dates: start: 20170411, end: 20170421
  49. SODIUM CHLORIDE. [Concomitant]
     Active Substance: SODIUM CHLORIDE
     Dosage: 100 ML, PRN
     Route: 042
     Dates: start: 20170410, end: 20170410
  50. SODIUM PHOSPHATE [Concomitant]
     Active Substance: SODIUM PHOSPHATE
     Indication: GASTRIC LAVAGE
     Dosage: 133 ML, PRN
     Route: 054
     Dates: start: 20170408, end: 20170408
  51. SULBACTAM SODIUM [Concomitant]
     Active Substance: SULBACTAM SODIUM
     Indication: INFECTION
     Dosage: 100 ML, QD
     Route: 042
     Dates: start: 20170411, end: 20170421
  52. TACROLIMUS. [Suspect]
     Active Substance: TACROLIMUS
     Dosage: 7 MG, QD
     Route: 065
     Dates: start: 20170424
  53. AMLODIPIN/ATORVASTATIN [Concomitant]
     Active Substance: AMLODIPINE BESYLATE\ATORVASTATIN CALCIUM
     Indication: BLOOD PRESSURE ABNORMAL
     Dosage: 1 DF, QD
     Route: 048
     Dates: start: 20170415, end: 20170704
  54. SULFAMETHOXAZOLE [Concomitant]
     Active Substance: SULFAMETHOXAZOLE
     Indication: INFECTION
     Dosage: 240 MG, QD
     Route: 048
     Dates: start: 20170424
  55. GANCICLOVIR. [Concomitant]
     Active Substance: GANCICLOVIR
     Indication: ANTIVIRAL TREATMENT
     Dosage: 500 MG, TID
     Route: 048
     Dates: start: 20170424
  56. HEPARIN SODIUM. [Concomitant]
     Active Substance: HEPARIN SODIUM
     Indication: PROPHYLAXIS
     Dosage: 12500 IU, W2D1
     Route: 042
     Dates: start: 20170410, end: 20170424
  57. SODIUM BICARBONATE. [Concomitant]
     Active Substance: SODIUM BICARBONATE
     Indication: PRODUCT USED FOR UNKNOWN INDICATION
     Dosage: 250 ML, QD
     Route: 042
     Dates: start: 20170408, end: 20170409
  58. TALCID [Concomitant]
     Active Substance: HYDROTALCITE
     Indication: GASTRITIS PROPHYLAXIS
     Dosage: 1000 MG, QD
     Route: 048
     Dates: start: 20170408

REACTIONS (13)
  - Blood glucose decreased [Unknown]
  - Musculoskeletal pain [Recovering/Resolving]
  - Acinetobacter test positive [Recovered/Resolved]
  - Malaise [Recovered/Resolved]
  - Blood creatinine increased [Recovered/Resolved]
  - Procedural pain [Recovering/Resolving]
  - Pain in extremity [Recovering/Resolving]
  - Renal graft infection [Recovered/Resolved]
  - Haemorrhoids [Recovered/Resolved]
  - Anaemia [Recovered/Resolved]
  - Oedema peripheral [Recovered/Resolved]
  - Urine output decreased [Recovered/Resolved]
  - Lymphocyte count decreased [Unknown]

NARRATIVE: CASE EVENT DATE: 20170409
